FAERS Safety Report 6503542-8 (Version None)
Quarter: 2009Q4

REPORT INFORMATION
  Report Type: 
  Country: None (occurrence: None)
  Receive Date: 20091217
  Receipt Date: 20091211
  Transmission Date: 20100525
  Serious: Yes (Hospitalization)
  Sender: FDA-Public Use
  Company Number: JP-BAYER-200915033BYL

PATIENT
  Age: 70 Year
  Sex: Male
  Weight: 76 kg

DRUGS (6)
  1. NEXAVAR [Suspect]
     Indication: RENAL CELL CARCINOMA
     Dosage: TOTAL DAILY DOSE: 800 MG  UNIT DOSE: 200 MG
     Route: 048
     Dates: start: 20090929, end: 20091102
  2. FLIVAS [Concomitant]
     Route: 048
     Dates: start: 20030101
  3. MOBIC [Concomitant]
     Route: 048
     Dates: start: 20090824
  4. BLOPRESS [Concomitant]
     Route: 048
     Dates: start: 20090901
  5. LAC-B [Concomitant]
     Route: 048
     Dates: start: 20090920
  6. PRIMPERAN TAB [Concomitant]
     Route: 048
     Dates: start: 20090920

REACTIONS (3)
  - HEPATIC FUNCTION ABNORMAL [None]
  - HYPERTENSION [None]
  - PALMAR-PLANTAR ERYTHRODYSAESTHESIA SYNDROME [None]
